FAERS Safety Report 11218047 (Version 1)
Quarter: 2015Q2

REPORT INFORMATION
  Report Type: Spontaneous
  Country: GB (occurrence: None)
  Receive Date: 20150623
  Receipt Date: 20150623
  Transmission Date: 20150821
  Serious: No
  Sender: FDA-Public Use
  Company Number: GB-LHC-2015070

PATIENT
  Sex: Male

DRUGS (1)
  1. COMPRESSED MEDICAL OXYGEN (OXYGEN) (GAS FOR INHALATION) (VERUM) [Suspect]
     Active Substance: OXYGEN
     Indication: PRODUCT USED FOR UNKNOWN INDICATION
     Dosage: DOMICILLARY 2 1 PM 16 HOURS PER DAY, AMBULATORY 2 1PM 1.9 HOURS PER DAY
     Route: 055
     Dates: start: 201101

REACTIONS (2)
  - Thermal burn [None]
  - Injury [None]
